FAERS Safety Report 14410451 (Version 1)
Quarter: 2018Q1

REPORT INFORMATION
  Report Type: Spontaneous
  Country: US (occurrence: US)
  Receive Date: 20180116
  Receipt Date: 20180116
  Transmission Date: 20180509
  Serious: No
  Sender: FDA-Public Use
  Company Number: None

PATIENT
  Age: 65 Year
  Sex: Female

DRUGS (17)
  1. METHENAMINE [Concomitant]
     Active Substance: METHENAMINE
  2. XARELTO [Concomitant]
     Active Substance: RIVAROXABAN
  3. PROBIOTIC [Concomitant]
     Active Substance: PROBIOTICS NOS
  4. VITAMIN B12 [Concomitant]
     Active Substance: CYANOCOBALAMIN
  5. BACTRIM [Concomitant]
     Active Substance: SULFAMETHOXAZOLE\TRIMETHOPRIM
  6. MIRTAZAPINE. [Concomitant]
     Active Substance: MIRTAZAPINE
  7. VITAMIN D [Concomitant]
     Active Substance: CHOLECALCIFEROL
  8. VANCOMYCIN [Concomitant]
     Active Substance: VANCOMYCIN
  9. CRANBERRY TABS [Concomitant]
  10. MELATONIN [Concomitant]
     Active Substance: MELATONIN
  11. ZANTAC [Concomitant]
     Active Substance: RANITIDINE HYDROCHLORIDE
  12. METOPROLOL TARTRATE. [Concomitant]
     Active Substance: METOPROLOL TARTRATE
  13. BACLOFEN. [Concomitant]
     Active Substance: BACLOFEN
  14. SOLU-MEDROL [Concomitant]
     Active Substance: METHYLPREDNISOLONE SODIUM SUCCINATE
  15. ATELVIA [Concomitant]
     Active Substance: RISEDRONATE SODIUM
  16. REBIF [Suspect]
     Active Substance: INTERFERON BETA-1A
     Indication: MULTIPLE SCLEROSIS
     Dosage: DOSE 44MCG/0.5ML?
     Route: 058
     Dates: start: 20140910
  17. TRIMETHOPRIME [Concomitant]
     Active Substance: TRIMETHOPRIM

REACTIONS (2)
  - Skin infection [None]
  - Surgery [None]

NARRATIVE: CASE EVENT DATE: 201711
